FAERS Safety Report 12574695 (Version 1)
Quarter: 2016Q3

REPORT INFORMATION
  Report Type: Spontaneous
  Country: DE (occurrence: DE)
  Receive Date: 20160720
  Receipt Date: 20160720
  Transmission Date: 20161109
  Serious: Yes (Other)
  Sender: FDA-Public Use
  Company Number: DE-PFIZER INC-2016337324

PATIENT
  Sex: Female

DRUGS (1)
  1. VENLAFAXIN PFIZER RETARD [Suspect]
     Active Substance: VENLAFAXINE HYDROCHLORIDE
     Dosage: UNK
     Dates: start: 1986

REACTIONS (6)
  - Palpitations [Unknown]
  - Fluid retention [Unknown]
  - Coma [Unknown]
  - Tooth loss [Unknown]
  - Obesity [Unknown]
  - Drug ineffective [Unknown]
